FAERS Safety Report 4396095-4 (Version None)
Quarter: 2004Q3

REPORT INFORMATION
  Report Type: 
  Country: None (occurrence: None)
  Receive Date: 20040708
  Receipt Date: 20040622
  Transmission Date: 20050211
  Serious: Yes (Death, Congenital Anomaly)
  Sender: FDA-Public Use
  Company Number: 198585

PATIENT
  Sex: Female

DRUGS (2)
  1. AVONEX [Suspect]
     Indication: MULTIPLE SCLEROSIS
     Dates: start: 20010801, end: 20020601
  2. ZOLOFT [Concomitant]

REACTIONS (5)
  - ASPIRATION [None]
  - CHROMOSOME ABNORMALITY [None]
  - CONGENITAL NEUROLOGICAL DISORDER [None]
  - DRUG EXPOSURE DURING PREGNANCY [None]
  - LISSENCEPHALY [None]
